FAERS Safety Report 18428615 (Version 1)
Quarter: 2020Q4

REPORT INFORMATION
  Report Type: Spontaneous
  Country: US (occurrence: US)
  Receive Date: 20201026
  Receipt Date: 20201026
  Transmission Date: 20210114
  Serious: No
  Sender: FDA-Public Use
  Company Number: US-JNJFOC-20201035964

PATIENT
  Sex: Female

DRUGS (1)
  1. WOMENS ROGAINE UNSCENTED [Suspect]
     Active Substance: MINOXIDIL
     Indication: PRODUCT USED FOR UNKNOWN INDICATION
     Dosage: 1/2 CAPFUL, ONCE A DAY AT NIGHT, THE PRODUCT LAST USED ABOUT A MONTH AGO.
     Route: 061
     Dates: start: 2020, end: 2020

REACTIONS (1)
  - Application site dermatitis [Recovered/Resolved]

NARRATIVE: CASE EVENT DATE: 2020
